FAERS Safety Report 12633730 (Version 1)
Quarter: 2016Q3

REPORT INFORMATION
  Report Type: Other
  Country: US (occurrence: US)
  Receive Date: 20160809
  Receipt Date: 20160809
  Transmission Date: 20161109
  Serious: Yes (Hospitalization)
  Sender: FDA-Public Use
  Company Number: US-ENDO PHARMACEUTICALS INC-2016-004779

PATIENT
  Age: 84 Year
  Sex: Male
  Weight: 60 kg

DRUGS (14)
  1. DEXAMETHASONE ELIXIR [Suspect]
     Active Substance: DEXAMETHASONE
     Route: 048
  2. DEXAMETHASONE ELIXIR [Suspect]
     Active Substance: DEXAMETHASONE
     Route: 048
  3. VORICONAZOLE. [Suspect]
     Active Substance: VORICONAZOLE
     Indication: BRAIN ABSCESS
     Dosage: 6 MG/KG (400 MG) TIMES TWO DOSES
     Route: 042
  4. VORICONAZOLE. [Suspect]
     Active Substance: VORICONAZOLE
     Route: 042
  5. VORICONAZOLE. [Suspect]
     Active Substance: VORICONAZOLE
     Route: 048
  6. VORICONAZOLE. [Suspect]
     Active Substance: VORICONAZOLE
     Route: 042
  7. VORICONAZOLE. [Suspect]
     Active Substance: VORICONAZOLE
     Route: 048
  8. VORICONAZOLE. [Suspect]
     Active Substance: VORICONAZOLE
     Route: 042
  9. VORICONAZOLE. [Suspect]
     Active Substance: VORICONAZOLE
     Route: 048
  10. DEXAMETHASONE ELIXIR [Suspect]
     Active Substance: DEXAMETHASONE
     Indication: BRAIN OEDEMA
     Route: 048
  11. DEXAMETHASONE ELIXIR [Suspect]
     Active Substance: DEXAMETHASONE
     Route: 048
  12. VORICONAZOLE. [Suspect]
     Active Substance: VORICONAZOLE
     Dosage: 4 MG/KG (250 MG) FOR ONE WEEK
     Route: 042
  13. DEXAMETHASONE ELIXIR [Suspect]
     Active Substance: DEXAMETHASONE
     Route: 048
  14. DEXAMETHASONE ELIXIR [Suspect]
     Active Substance: DEXAMETHASONE
     Route: 048

REACTIONS (2)
  - Inhibitory drug interaction [Recovered/Resolved]
  - Drug level below therapeutic [Recovered/Resolved]
